FAERS Safety Report 8576215 (Version 3)
Quarter: 2012Q4

REPORT INFORMATION
  Report Type: Report from Study
  Country: CA (occurrence: CA)
  Receive Date: 20120523
  Receipt Date: 20121023
  Transmission Date: 20130627
  Serious: Yes (Hospitalization, Other)
  Sender: FDA-Public Use
  Company Number: CA-ROCHE-1067787

PATIENT
  Age: 46 Year
  Sex: Female
  Weight: 78.09 kg

DRUGS (5)
  1. TOCILIZUMAB [Suspect]
     Indication: RHEUMATOID ARTHRITIS
     Route: 042
     Dates: start: 20111121
  2. SYNTHROID [Concomitant]
  3. FOLIC ACID [Concomitant]
  4. CELEXA [Concomitant]
  5. METHOTREXATE [Concomitant]

REACTIONS (5)
  - Swollen tongue [Recovering/Resolving]
  - Pharyngeal oedema [Unknown]
  - Lip swelling [Unknown]
  - Swelling face [Recovering/Resolving]
  - Rash [Recovering/Resolving]
